FAERS Safety Report 8366095-8 (Version None)
Quarter: 2012Q2

REPORT INFORMATION
  Report Type: 
  Country: None (occurrence: None)
  Receive Date: 20120516
  Receipt Date: 20120516
  Transmission Date: 20120825
  Serious: Yes (Death)
  Sender: FDA-Public Use
  Company Number: None

PATIENT
  Age: 88 Year
  Sex: Female
  Weight: 54.4316 kg

DRUGS (2)
  1. NAPROXEN (ALEVE) [Suspect]
     Indication: ARTHRALGIA
     Dosage: 220 MG
  2. PRADAXA [Suspect]
     Indication: TRANSIENT ISCHAEMIC ATTACK
     Dosage: 150 MG ONCE DAY

REACTIONS (1)
  - GASTROINTESTINAL HAEMORRHAGE [None]
